FAERS Safety Report 7429217-9 (Version None)
Quarter: 2011Q2

REPORT INFORMATION
  Report Type: 
  Country: None (occurrence: None)
  Receive Date: 20110421
  Receipt Date: 20110411
  Transmission Date: 20111010
  Serious: Yes (Hospitalization)
  Sender: FDA-Public Use
  Company Number: FR-SANOFI-AVENTIS-2011SA009481

PATIENT
  Age: 74 Year
  Sex: Female
  Weight: 72 kg

DRUGS (11)
  1. RODOGYL [Concomitant]
     Route: 048
  2. MULTAQ [Suspect]
     Indication: ATRIAL FIBRILLATION
     Route: 048
     Dates: start: 20101212
  3. LASIX [Concomitant]
     Route: 048
  4. PRAVASTATIN [Concomitant]
     Route: 048
     Dates: end: 20110211
  5. PREVISCAN [Concomitant]
     Route: 048
  6. NEORAL [Concomitant]
     Route: 048
  7. SOLUPRED [Concomitant]
     Route: 048
  8. TANAKAN [Concomitant]
     Route: 048
  9. DEROXAT [Concomitant]
     Route: 048
  10. CACIT D3 [Concomitant]
     Route: 048
  11. AMIODARONE [Concomitant]
     Route: 048
     Dates: end: 20101211

REACTIONS (3)
  - GAMMA-GLUTAMYLTRANSFERASE INCREASED [None]
  - ALANINE AMINOTRANSFERASE INCREASED [None]
  - ASTHENIA [None]
